FAERS Safety Report 5266384-X (Version None)
Quarter: 2007Q1

REPORT INFORMATION
  Report Type: 
  Country: None (occurrence: None)
  Receive Date: 20070315
  Receipt Date: 20061207
  Transmission Date: 20070707
  Serious: Yes (Other)
  Sender: FDA-Public Use
  Company Number: US-GLAXOSMITHKLINE-A0587038A

PATIENT
  Age: 63 Year
  Sex: Male

DRUGS (4)
  1. FLOVENT [Suspect]
     Indication: EMPHYSEMA
     Route: 055
     Dates: start: 20051112, end: 20051203
  2. OXYGEN [Concomitant]
  3. UNKNOWN DRUG [Concomitant]
  4. FOSAMAX [Concomitant]

REACTIONS (3)
  - DRUG INEFFECTIVE [None]
  - DYSPNOEA [None]
  - PHARMACEUTICAL PRODUCT COMPLAINT [None]
